FAERS Safety Report 7333628-X (Version None)
Quarter: 2011Q1

REPORT INFORMATION
  Report Type: 
  Country: None (occurrence: None)
  Receive Date: 20110305
  Receipt Date: 20110225
  Transmission Date: 20110831
  Serious: Yes (Other)
  Sender: FDA-Public Use
  Company Number: US-AMGEN-USASP2011011903

PATIENT
  Sex: Female

DRUGS (6)
  1. PROCRIT [Suspect]
     Indication: ANAEMIA
  2. ALLOPURINOL [Concomitant]
     Dosage: UNK
  3. WHOLE BLOOD [Concomitant]
  4. ANTINEOPLASTIC AGENTS [Concomitant]
  5. ARANESP [Suspect]
     Indication: ANAEMIA
  6. FERROUS SULFATE TAB [Concomitant]

REACTIONS (2)
  - MYELODYSPLASTIC SYNDROME [None]
  - TRANSFUSION [None]
